FAERS Safety Report 6318113-6 (Version None)
Quarter: 2009Q3

REPORT INFORMATION
  Report Type: 
  Country: None (occurrence: None)
  Receive Date: 20090821
  Receipt Date: 20090818
  Transmission Date: 20100115
  Serious: Yes (Hospitalization)
  Sender: FDA-Public Use
  Company Number: GB-JNJFOC-20090805388

PATIENT
  Sex: Female

DRUGS (2)
  1. IBUPROFEN [Suspect]
     Indication: DRUG USE FOR UNKNOWN INDICATION
  2. RIVAROXABAN [Suspect]
     Indication: HIP SURGERY
     Dosage: AT LEAST 2 DOSES GIVEN, COMMENCING 24 HOURS AFTER SURGERY
     Route: 048

REACTIONS (1)
  - POST PROCEDURAL DISCHARGE [None]
